FAERS Safety Report 10618709 (Version 1)
Quarter: 2014Q4

REPORT INFORMATION
  Report Type: Spontaneous
  Country: US (occurrence: US)
  Receive Date: 20141202
  Receipt Date: 20141202
  Transmission Date: 20150529
  Serious: Yes (Other)
  Sender: FDA-Public Use
  Company Number: US-SA-2014SA164513

PATIENT
  Age: 62 Year
  Sex: Female
  Weight: 62.59 kg

DRUGS (14)
  1. MECLIZINE [Concomitant]
     Active Substance: MECLIZINE\MECLIZINE HYDROCHLORIDE
  2. CEREZYME [Suspect]
     Active Substance: IMIGLUCERASE
     Indication: GAUCHER^S DISEASE
     Dosage: DOSE:2800 UNIT(S)
     Route: 042
     Dates: start: 20021230
  3. LACTOBACILLUS ACIDOPHILUS/LACTOBACILLUS BULGARICUS [Concomitant]
  4. DICLOFENAC [Concomitant]
     Active Substance: DICLOFENAC
  5. NORMAL SALINE [Concomitant]
     Active Substance: SODIUM CHLORIDE
  6. DIPHENHYDRAMINE [Concomitant]
     Active Substance: DIPHENHYDRAMINE
  7. WATER. [Concomitant]
     Active Substance: WATER
  8. TYLENOL [Concomitant]
     Active Substance: ACETAMINOPHEN
  9. VESICARE [Concomitant]
     Active Substance: SOLIFENACIN SUCCINATE
  10. IBUPROFEN. [Concomitant]
     Active Substance: IBUPROFEN
  11. SODIUM CHLORIDE. [Concomitant]
     Active Substance: SODIUM CHLORIDE
  12. VICODIN [Concomitant]
     Active Substance: ACETAMINOPHEN\HYDROCODONE BITARTRATE
  13. EPIPEN [Concomitant]
     Active Substance: EPINEPHRINE
  14. PRILOSEC [Concomitant]
     Active Substance: OMEPRAZOLE MAGNESIUM

REACTIONS (2)
  - Cystitis [Unknown]
  - Bladder operation [Unknown]
